FAERS Safety Report 7755377-6 (Version None)
Quarter: 2011Q3

REPORT INFORMATION
  Report Type: 
  Country: None (occurrence: None)
  Receive Date: 20110916
  Receipt Date: 20110906
  Transmission Date: 20111222
  Serious: Yes (Other)
  Sender: FDA-Public Use
  Company Number: CA-JNJFOC-20110903640

PATIENT
  Sex: Female

DRUGS (1)
  1. SIMPONI [Suspect]
     Indication: RHEUMATOID ARTHRITIS
     Route: 058
     Dates: start: 20110801, end: 20110801

REACTIONS (5)
  - DIARRHOEA [None]
  - SWOLLEN TONGUE [None]
  - ABDOMINAL PAIN UPPER [None]
  - OROPHARYNGEAL PAIN [None]
  - OEDEMA MOUTH [None]
